FAERS Safety Report 5812653-1 (Version None)
Quarter: 2008Q3

REPORT INFORMATION
  Report Type: 
  Country: None (occurrence: None)
  Receive Date: 20080714
  Receipt Date: 20080714
  Transmission Date: 20090109
  Serious: Yes (Other)
  Sender: FDA-Public Use
  Company Number: None

PATIENT
  Sex: Female
  Weight: 75 kg

DRUGS (2)
  1. LEVAQUIN [Suspect]
     Dosage: 750MG DAILY PO
     Route: 048
  2. LEVAQUIN [Suspect]
     Dosage: 500MG DAILY IV DRIP
     Route: 041

REACTIONS (3)
  - ARTHRALGIA [None]
  - NAUSEA [None]
  - VOMITING [None]
